FAERS Safety Report 4924648-0 (Version None)
Quarter: 2006Q1

REPORT INFORMATION
  Report Type: 
  Country: None (occurrence: None)
  Receive Date: 20060127
  Receipt Date: 20051021
  Transmission Date: 20060701
  Serious: Yes (Other)
  Sender: FDA-Public Use
  Company Number: 2005145579

PATIENT
  Age: 78 Year
  Sex: Male
  Weight: 70.7611 kg

DRUGS (9)
  1. LYRICA [Suspect]
     Indication: NEUROPATHY
     Dosage: 150 MG (75 MG, 2 IN 1 D), ORAL
     Route: 048
     Dates: start: 20051001
  2. GUAIFENESIN [Concomitant]
  3. LANOXIN [Concomitant]
  4. MAXZIDE [Concomitant]
  5. ASPIRIN [Concomitant]
  6. WARFARIN SODIUM [Concomitant]
  7. ZOCOR [Concomitant]
  8. ACTONEL [Concomitant]
  9. DIGOXIN [Concomitant]

REACTIONS (5)
  - OEDEMA PERIPHERAL [None]
  - POLLAKIURIA [None]
  - URINARY INCONTINENCE [None]
  - URINE OUTPUT INCREASED [None]
  - WEIGHT INCREASED [None]
